FAERS Safety Report 13001835 (Version 1)
Quarter: 2016Q4

REPORT INFORMATION
  Report Type: Other
  Country: CA (occurrence: CA)
  Receive Date: 20161206
  Receipt Date: 20161206
  Transmission Date: 20170207
  Serious: Yes (Death, Disabling)
  Sender: FDA-Public Use
  Company Number: CA-APOTEX-2016AP015060

PATIENT
  Age: 69 Year
  Sex: Male

DRUGS (2)
  1. APO-RISPERIDONE [Suspect]
     Active Substance: RISPERIDONE
     Indication: CONFUSIONAL STATE
     Dosage: 0.5 MG, TID
     Route: 065
  2. LORAZEPAM. [Concomitant]
     Active Substance: LORAZEPAM
     Indication: PRODUCT USED FOR UNKNOWN INDICATION
     Route: 065

REACTIONS (1)
  - Parkinsonism [Fatal]
